FAERS Safety Report 4422482-1 (Version None)
Quarter: 2004Q3

REPORT INFORMATION
  Report Type: 
  Country: None (occurrence: None)
  Receive Date: 20040806
  Receipt Date: 20040729
  Transmission Date: 20050211
  Serious: Yes (Hospitalization, Other)
  Sender: FDA-Public Use
  Company Number: KII-2004-0012657

PATIENT
  Age: 46 Year
  Sex: Female

DRUGS (1)
  1. OXYCONTIN [Suspect]
     Dosage: INTRAVENOUS
     Route: 042

REACTIONS (6)
  - DRUG WITHDRAWAL SYNDROME [None]
  - HAEMOPTYSIS [None]
  - MEDICATION ERROR [None]
  - MENTAL STATUS CHANGES [None]
  - PNEUMONIA [None]
  - SPUTUM DISCOLOURED [None]
